FAERS Safety Report 16694359 (Version 2)
Quarter: 2019Q3

REPORT INFORMATION
  Report Type: Spontaneous
  Country: US (occurrence: US)
  Receive Date: 20190812
  Receipt Date: 20190819
  Transmission Date: 20191004
  Serious: Yes (Other)
  Sender: FDA-Public Use
  Company Number: US-PFIZER INC-2019341869

PATIENT
  Age: 44 Year
  Sex: Female
  Weight: 65.76 kg

DRUGS (3)
  1. LEVOXYL [Suspect]
     Active Substance: LEVOTHYROXINE SODIUM
     Indication: AUTOIMMUNE THYROIDITIS
     Dosage: 112 UG, 1X/DAY
  2. LEVOXYL [Suspect]
     Active Substance: LEVOTHYROXINE SODIUM
     Dosage: 0.5 DF, DAILY (125MCG TABLET TAKEN BY MOUTH ONCE ON DAYS 1-6, THEN 1/2 TABLET ON DAY 7)
     Route: 048
     Dates: start: 2001
  3. LEVOXYL [Suspect]
     Active Substance: LEVOTHYROXINE SODIUM
     Dosage: 125 UG, DAILY (125MCG TABLET TAKEN BY MOUTH ONCE ON DAYS 1-6, THEN 1/2 TABLET ON DAY 7)
     Route: 048
     Dates: start: 2001

REACTIONS (4)
  - Drug ineffective [Unknown]
  - Joint swelling [Recovered/Resolved]
  - Weight decreased [Unknown]
  - Heart rate increased [Not Recovered/Not Resolved]

NARRATIVE: CASE EVENT DATE: 2001
